FAERS Safety Report 23842113 (Version 1)
Quarter: 2024Q2

REPORT INFORMATION
  Report Type: Spontaneous
  Country: RO (occurrence: RO)
  Receive Date: 20240510
  Receipt Date: 20240510
  Transmission Date: 20240716
  Serious: Yes (Other)
  Sender: FDA-Public Use
  Company Number: RO-PFIZER INC-PV202400053242

PATIENT
  Age: 66 Year
  Sex: Female

DRUGS (3)
  1. ZOLEDRONIC ACID [Suspect]
     Active Substance: ZOLEDRONIC ACID
     Indication: Product used for unknown indication
     Dosage: 4 MILLIGRAM, Q28D (4 MG, FOUR WEEKLY)
     Route: 065
     Dates: start: 201905, end: 20200807
  2. PALBOCICLIB [Suspect]
     Active Substance: PALBOCICLIB
     Indication: Product used for unknown indication
     Dosage: 125 MILLIGRAM, CYCLE (125 MG, CYCLIC (D1-D21)
     Route: 065
     Dates: start: 201905
  3. LETROZOLE [Suspect]
     Active Substance: LETROZOLE
     Indication: Product used for unknown indication
     Dosage: 2.5 MILLIGRAM, QD (2.5 MG, 1X/DAY)
     Route: 065

REACTIONS (9)
  - Leukopenia [Recovered/Resolved]
  - Thrombocytopenia [Recovered/Resolved]
  - Osteonecrosis of jaw [Unknown]
  - Osteoarthritis [Unknown]
  - Bone lesion [Unknown]
  - Tachycardia [Unknown]
  - Spinal deformity [Unknown]
  - Asthma [Unknown]
  - Tooth abscess [Unknown]

NARRATIVE: CASE EVENT DATE: 20191127
